FAERS Safety Report 19310840 (Version 1)
Quarter: 2021Q2

REPORT INFORMATION
  Report Type: Spontaneous
  Country: US (occurrence: US)
  Receive Date: 20210526
  Receipt Date: 20210526
  Transmission Date: 20210717
  Serious: Yes (Hospitalization, Other)
  Sender: FDA-Public Use
  Company Number: US-BRISTOL-MYERS SQUIBB COMPANY-BMS-2021-049362

PATIENT
  Age: 53 Year
  Sex: Male
  Weight: 176.9 kg

DRUGS (3)
  1. ELIQUIS [Suspect]
     Active Substance: APIXABAN
     Indication: CEREBROVASCULAR ACCIDENT PROPHYLAXIS
     Dosage: 5 MILLIGRAM, BID
     Route: 048
  2. PRIMIDONE. [Suspect]
     Active Substance: PRIMIDONE
     Indication: TREMOR
     Dosage: 50 MG PER DAY  THE FIRST WEEK, THEN 100 MG PER DAY THE SECOND WEEK, 150 MG PER DAY THE 3RD WEEK, 200
     Route: 065
  3. KEPPRA [Concomitant]
     Active Substance: LEVETIRACETAM
     Indication: PRODUCT USED FOR UNKNOWN INDICATION
     Dosage: 500 MG ? 2 TABLETS DAILY
     Route: 065

REACTIONS (3)
  - Tremor [Unknown]
  - Pulmonary thrombosis [Unknown]
  - Cellulitis [Unknown]
